FAERS Safety Report 5698530-8 (Version None)
Quarter: 2008Q2

REPORT INFORMATION
  Report Type: 
  Country: None (occurrence: None)
  Receive Date: 20080408
  Receipt Date: 20060809
  Transmission Date: 20081010
  Serious: No
  Sender: FDA-Public Use
  Company Number: US-BAYER-US-2006-022729

PATIENT
  Age: 52 Year
  Sex: Female
  Weight: 58 kg

DRUGS (8)
  1. MENOSTAR [Suspect]
     Indication: OSTEOPOROSIS
     Route: 062
     Dates: start: 20060808
  2. ASPIRIN [Concomitant]
  3. VITAMINS [Concomitant]
  4. ZANTAC [Concomitant]
  5. PULMICORT [Concomitant]
  6. DEXAMETHASONE [Concomitant]
  7. ATROVENT [Concomitant]
  8. CALCIUM [Concomitant]

REACTIONS (4)
  - BALANCE DISORDER [None]
  - DIZZINESS [None]
  - HEADACHE [None]
  - NAUSEA [None]
